FAERS Safety Report 9834486 (Version 2)
Quarter: 2014Q1

REPORT INFORMATION
  Report Type: Spontaneous
  Country: IT (occurrence: IT)
  Receive Date: 20140122
  Receipt Date: 20140205
  Transmission Date: 20141002
  Serious: Yes (Other)
  Sender: FDA-Public Use
  Company Number: IT-ELI_LILLY_AND_COMPANY-IT201401003662

PATIENT
  Age: 47 Year
  Sex: Female

DRUGS (2)
  1. GEMZAR [Suspect]
     Indication: LEIOMYOSARCOMA
     Dosage: 1440 MG, CYCLICAL
     Route: 042
     Dates: start: 20131118, end: 20131223
  2. TAXOTERE [Suspect]
     Indication: LEIOMYOSARCOMA
     Dosage: 160 MG, CYCLICAL
     Route: 042
     Dates: start: 20131118, end: 20131223

REACTIONS (9)
  - Leukopenia [Unknown]
  - Neutropenia [Unknown]
  - Anaemia [Unknown]
  - Musculoskeletal pain [Unknown]
  - Neutropenia [Unknown]
  - Leukopenia [Unknown]
  - Musculoskeletal pain [Unknown]
  - Palmar-plantar erythrodysaesthesia syndrome [Unknown]
  - Anaemia [Unknown]
